FAERS Safety Report 16964440 (Version 1)
Quarter: 2019Q4

REPORT INFORMATION
  Report Type: Spontaneous
  Country: US (occurrence: US)
  Receive Date: 20190909
  Receipt Date: 20190909
  Transmission Date: 20200122
  Serious: No
  Sender: FDA-Public Use
  Company Number: None

PATIENT
  Age: 31 Year
  Sex: Female

DRUGS (1)
  1. HUMIRA [Suspect]
     Active Substance: ADALIMUMAB
     Indication: RHEUMATOID ARTHRITIS
     Route: 058

REACTIONS (5)
  - Device malfunction [None]
  - Incorrect dose administered by device [None]
  - Needle issue [None]
  - Drug dose omission by device [None]
  - Injection site reaction [None]

NARRATIVE: CASE EVENT DATE: 20190820
